FAERS Safety Report 5463873-X (Version None)
Quarter: 2007Q3

REPORT INFORMATION
  Report Type: 
  Country: None (occurrence: None)
  Receive Date: 20070712
  Receipt Date: 20060816
  Transmission Date: 20080115
  Serious: Yes (Hospitalization)
  Sender: FDA-Public Use
  Company Number: 200610477

PATIENT
  Age: 44 Year
  Sex: Female
  Weight: 63.5036 kg

DRUGS (5)
  1. CARIMUNE NF (CSL BEHRING) [Suspect]
     Indication: MULTIPLE SCLEROSIS
     Dosage: IV; 40 G ONCE IV
     Route: 042
     Dates: start: 20060815, end: 20060815
  2. CARIMUNE NF (CSL BEHRING) [Suspect]
     Indication: MULTIPLE SCLEROSIS
     Dosage: IV; 40 G ONCE IV
     Route: 042
     Dates: start: 20051201
  3. AMBIEN [Concomitant]
  4. ARICEPT [Concomitant]
  5. CYMBALTA [Concomitant]

REACTIONS (1)
  - CONVULSION [None]
